FAERS Safety Report 15493522 (Version 1)
Quarter: 2018Q4

REPORT INFORMATION
  Report Type: Spontaneous
  Country: CA (occurrence: CA)
  Receive Date: 20181012
  Receipt Date: 20181012
  Transmission Date: 20190205
  Serious: Yes (Life-Threatening, Disabling)
  Sender: FDA-Public Use
  Company Number: CA-009507513-1504CAN021097

PATIENT
  Age: 26 Year
  Sex: Female
  Weight: 77.1 kg

DRUGS (2)
  1. MARVELON [Suspect]
     Active Substance: DESOGESTREL\ETHINYL ESTRADIOL
     Dosage: 1 TABLET REPORTED AS 0.15/0.03 MG, QD
     Route: 048
     Dates: start: 201402, end: 201404
  2. ALBUTEROL SULFATE. [Concomitant]
     Active Substance: ALBUTEROL SULFATE
     Indication: ASTHMA EXERCISE INDUCED
     Dosage: 1-2 PUFFS, PRN; 1-3 TIMES/YEAR
     Route: 055

REACTIONS (3)
  - Deep vein thrombosis [Not Recovered/Not Resolved]
  - Pulmonary embolism [Not Recovered/Not Resolved]
  - Haemorrhage [Unknown]

NARRATIVE: CASE EVENT DATE: 201404
